FAERS Safety Report 7724712-7 (Version None)
Quarter: 2011Q3

REPORT INFORMATION
  Report Type: 
  Country: None (occurrence: None)
  Receive Date: 20110901
  Receipt Date: 20110826
  Transmission Date: 20111222
  Serious: Yes (Other)
  Sender: FDA-Public Use
  Company Number: US-VERTEX PHARMACEUTICALS INC.-AE-2011-001088

PATIENT
  Age: 55 Year
  Sex: Male
  Weight: 82.3 kg

DRUGS (3)
  1. RIBAVIRIN [Concomitant]
     Indication: HEPATITIS C
     Dates: start: 20110812, end: 20110822
  2. INCIVEK [Suspect]
     Indication: HEPATITIS C
     Dates: start: 20110812, end: 20110822
  3. PEGINTERFERON [Concomitant]
     Indication: HEPATITIS C
     Dates: start: 20110812, end: 20110822

REACTIONS (3)
  - URTICARIA [None]
  - RASH [None]
  - PRURITUS [None]
